FAERS Safety Report 5069130-8 (Version None)
Quarter: 2006Q3

REPORT INFORMATION
  Report Type: 
  Country: None (occurrence: None)
  Receive Date: 20060731
  Receipt Date: 20060718
  Transmission Date: 20061208
  Serious: Yes (Hospitalization, Other)
  Sender: FDA-Public Use
  Company Number: 2006088273

PATIENT
  Age: 9 Year
  Sex: Male

DRUGS (3)
  1. DIFLUCAN [Suspect]
     Indication: SKIN CANDIDA
  2. UNSPECIFIED (ALL OTHER THERAPEUTIC PRODUCTS) [Concomitant]
  3. CHEMOTHERAPY FOR HODGKINS LYMPHOMA (ANTINEOPLASTIC [Concomitant]

REACTIONS (6)
  - BILIRUBIN CONJUGATED INCREASED [None]
  - BLOOD BILIRUBIN INCREASED [None]
  - NEUTROPENIA [None]
  - PYREXIA [None]
  - RESPIRATORY DISTRESS [None]
  - VOMITING [None]
